FAERS Safety Report 23297174 (Version 2)
Quarter: 2023Q4

REPORT INFORMATION
  Report Type: Spontaneous
  Country: CA (occurrence: US)
  Receive Date: 20231214
  Receipt Date: 20231227
  Transmission Date: 20240110
  Serious: No
  Sender: FDA-Public Use
  Company Number: CA-BAYER-2023A177086

PATIENT
  Age: 25 Year
  Sex: Male

DRUGS (1)
  1. MIRENA [Suspect]
     Active Substance: LEVONORGESTREL
     Dosage: 20?G/DAY
     Route: 015
     Dates: start: 202311

REACTIONS (6)
  - Penis injury [Recovered/Resolved]
  - Penile pain [Recovered/Resolved]
  - Penile haemorrhage [Recovered/Resolved]
  - Mental disorder [Recovering/Resolving]
  - Dyspareunia [Recovering/Resolving]
  - Fear [Recovering/Resolving]

NARRATIVE: CASE EVENT DATE: 20231119
